FAERS Safety Report 9193522 (Version 1)
Quarter: 2013Q1

REPORT INFORMATION
  Report Type: Spontaneous
  Country: US (occurrence: None)
  Receive Date: 20130325
  Receipt Date: 20130325
  Transmission Date: 20140127
  Serious: Yes (Hospitalization)
  Sender: FDA-Public Use
  Company Number: None

PATIENT
  Age: 68 Year
  Sex: Female
  Weight: 70 kg

DRUGS (1)
  1. PLAVIX [Suspect]
     Indication: ANGIOPATHY
     Route: 048
     Dates: start: 20121116, end: 20121129

REACTIONS (4)
  - Haemorrhagic anaemia [None]
  - Gastrointestinal haemorrhage [None]
  - Haemorrhage subcutaneous [None]
  - Abdominal wall haemorrhage [None]
